FAERS Safety Report 8564212-8 (Version None)
Quarter: 2012Q3

REPORT INFORMATION
  Report Type: 
  Country: None (occurrence: None)
  Receive Date: 20120803
  Receipt Date: 20101116
  Transmission Date: 20120928
  Serious: No
  Sender: FDA-Public Use
  Company Number: US-BAYER-201047316GPV

PATIENT
  Age: 20 Year
  Sex: Female
  Weight: 60 kg

DRUGS (23)
  1. DOXORUBICIN HYDROCHLORIDE [Suspect]
     Indication: NON-HODGKIN'S LYMPHOMA
  2. CYCLOPHOSPHAMIDE [Suspect]
     Indication: NON-HODGKIN'S LYMPHOMA
  3. FENTANYL CITRATE [Suspect]
     Route: 042
  4. FENTANYL CITRATE [Suspect]
     Dosage: TITRATED TO DISCONTINUATION
     Route: 042
  5. PROPOFOL [Suspect]
     Dosage: CONTINUOUS INTRAVENOUS INFUSIONS 6.6 MG/KG/H
     Route: 042
  6. MEROPENEM [Suspect]
     Indication: PNEUMONIA
  7. DACARBAZINE [Suspect]
     Indication: NON-HODGKIN'S LYMPHOMA
     Dosage: ON DAYS 20, 34, 54, 68, AND 80
  8. FENTANYL CITRATE [Suspect]
     Indication: ANALGESIC THERAPY
     Route: 042
  9. FENTANYL CITRATE [Suspect]
     Route: 042
  10. PROPOFOL [Suspect]
     Dosage: TITRATED TO DISCONTINUATION
     Route: 042
  11. VINBLASTINE SULFATE [Suspect]
     Indication: NON-HODGKIN'S LYMPHOMA
     Dosage: ON DAYS 20, 34, 54, 68, AND 80
  12. PROPOFOL [Suspect]
     Dosage: CONTINUOUS INTRAVENOUS INFUSIONS 9 MG/KG/H
     Route: 042
  13. PROPOFOL [Suspect]
     Dosage: CONTINUOUS INTRAVENOUS INFUSIONS 7.5 MG/KG/H
     Route: 042
  14. FENTANYL CITRATE [Suspect]
     Route: 042
  15. DOXORUBICIN HYDROCHLORIDE [Suspect]
     Dosage: ON DAYS 20, 34, 54, 68, AND 80
  16. PROPOFOL [Suspect]
     Indication: SEDATION
     Dosage: CONTINUOUS INTRAVENOUS INFUSIONS 2.4 MG/KG/H
     Route: 042
  17. AMPHOTERICIN B [Suspect]
     Indication: FUNGAEMIA
  18. PROPOFOL [Suspect]
     Dosage: CONTINUOUS INTRAVENOUS INFUSIONS 3 MG/KG/H
     Route: 042
  19. PIPERACILLIN/TAZOBACTAM [Suspect]
     Indication: PNEUMONIA
  20. LINEZOLID [Suspect]
     Indication: PNEUMONIA
  21. MIDAZOLAM [Suspect]
     Indication: SEDATION
     Dosage: MAXIMUM INFUSION RATE OF 10 MG/H
  22. ENOXAPARIN [Suspect]
     Indication: ANTICOAGULANT THERAPY
  23. VINCRISTINE [Suspect]
     Indication: NON-HODGKIN'S LYMPHOMA

REACTIONS (1)
  - OLIGOHYDRAMNIOS [None]
